FAERS Safety Report 10578819 (Version 1)
Quarter: 2014Q4

REPORT INFORMATION
  Report Type: Report from Study
  Country: CA (occurrence: CA)
  Receive Date: 20141112
  Receipt Date: 20141112
  Transmission Date: 20150529
  Serious: Yes (Other)
  Sender: FDA-Public Use
  Company Number: PHHY2014CA142068

PATIENT
  Sex: Male

DRUGS (1)
  1. GILENYA [Suspect]
     Active Substance: FINGOLIMOD HYDROCHLORIDE
     Indication: RELAPSING-REMITTING MULTIPLE SCLEROSIS
     Dosage: UNK
     Route: 065
     Dates: start: 20140925

REACTIONS (6)
  - Weight increased [Unknown]
  - Expanded disability status scale score increased [Unknown]
  - Diarrhoea [Unknown]
  - Urinary retention [Unknown]
  - Mood altered [Unknown]
  - Abdominal distension [Unknown]
